FAERS Safety Report 24242066 (Version 3)
Quarter: 2024Q4

REPORT INFORMATION
  Report Type: Spontaneous
  Country: US (occurrence: US)
  Receive Date: 20240823
  Receipt Date: 20241030
  Transmission Date: 20250114
  Serious: No
  Sender: ROCHE
  Company Number: US-ROCHE-10000057854

PATIENT
  Age: 49 Year
  Sex: Female
  Weight: 70.76 kg

DRUGS (5)
  1. RITUXAN [Suspect]
     Active Substance: RITUXIMAB
     Indication: Multiple sclerosis
     Route: 042
     Dates: start: 20190415
  2. MONTELUKAST [Concomitant]
     Active Substance: MONTELUKAST
  3. OXYBUTYNIN [Concomitant]
     Active Substance: OXYBUTYNIN
  4. IBUPROFEN [Concomitant]
     Active Substance: IBUPROFEN
  5. GRAMICIDIN\NEOMYCIN SULFATE\POLYMYXIN B SULFATE [Concomitant]
     Active Substance: GRAMICIDIN\NEOMYCIN SULFATE\POLYMYXIN B SULFATE

REACTIONS (3)
  - Cutaneous vasculitis [Recovered/Resolved]
  - Ill-defined disorder [Recovered/Resolved]
  - Off label use [Unknown]

NARRATIVE: CASE EVENT DATE: 20190426
